FAERS Safety Report 8055833-X (Version None)
Quarter: 2012Q1

REPORT INFORMATION
  Report Type: 
  Country: None (occurrence: None)
  Receive Date: 20120119
  Receipt Date: 20120119
  Transmission Date: 20120608
  Serious: No
  Sender: FDA-Public Use
  Company Number: None

PATIENT
  Age: 5 Year
  Sex: Female
  Weight: 22.226 kg

DRUGS (1)
  1. SINGULAIR [Suspect]
     Indication: COUGH
     Dosage: 4MG CHEWABLE TABLET
     Route: 048
     Dates: start: 20101013, end: 20111213

REACTIONS (5)
  - EMOTIONAL DISORDER [None]
  - ABNORMAL BEHAVIOUR [None]
  - ABNORMAL DREAMS [None]
  - DEPRESSED MOOD [None]
  - ANGER [None]
